FAERS Safety Report 6699253-9 (Version None)
Quarter: 2010Q2

REPORT INFORMATION
  Report Type: 
  Country: None (occurrence: None)
  Receive Date: 20100427
  Receipt Date: 20100413
  Transmission Date: 20101027
  Serious: Yes (Other)
  Sender: FDA-Public Use
  Company Number: US-ELI_LILLY_AND_COMPANY-US201004006381

PATIENT
  Sex: Male

DRUGS (4)
  1. CIALIS [Suspect]
     Indication: ERECTILE DYSFUNCTION
     Dosage: 10 MG, UNK
     Dates: start: 20051205, end: 20091230
  2. ZETIA [Concomitant]
  3. DEXAMETHASONE [Concomitant]
  4. FENTANYL [Concomitant]

REACTIONS (1)
  - MULTIPLE MYELOMA [None]
